FAERS Safety Report 7061022-8 (Version None)
Quarter: 2010Q4

REPORT INFORMATION
  Report Type: 
  Country: None (occurrence: None)
  Receive Date: 20101026
  Receipt Date: 20101014
  Transmission Date: 20110411
  Serious: Yes (Other)
  Sender: FDA-Public Use
  Company Number: US-PFIZER INC-2010131222

PATIENT

DRUGS (1)
  1. REVATIO [Suspect]
     Dosage: UNK
     Route: 048

REACTIONS (1)
  - SURGERY [None]
